FAERS Safety Report 8497563 (Version 2)
Quarter: 2013Q4

REPORT INFORMATION
  Report Type: Spontaneous
  Country: FR (occurrence: FR)
  Receive Date: 20120406
  Receipt Date: 20131004
  Transmission Date: 20140711
  Serious: Yes (Hospitalization)
  Sender: FDA-Public Use
  Company Number: FR-SANOFI-AVENTIS-2012SA022550

PATIENT
  Age: 70 Year
  Sex: Female

DRUGS (12)
  1. LOVENOX [Suspect]
     Indication: PRODUCT USED FOR UNKNOWN INDICATION
     Route: 058
     Dates: start: 20120210
  2. FLAGYL [Suspect]
     Indication: PRODUCT USED FOR UNKNOWN INDICATION
     Route: 048
     Dates: start: 20120211, end: 20120216
  3. EUPANTOL [Suspect]
     Indication: PRODUCT USED FOR UNKNOWN INDICATION
     Route: 042
     Dates: start: 20120210, end: 20120214
  4. EUPANTOL [Suspect]
     Indication: PRODUCT USED FOR UNKNOWN INDICATION
     Route: 048
     Dates: start: 20120214
  5. CIFLOX [Concomitant]
     Dosage: STRENGTH: 400 MG/200ML
     Route: 042
     Dates: start: 20120210, end: 20120214
  6. CIFLOX [Concomitant]
     Route: 048
     Dates: start: 20120214
  7. LAMOTRIGINE [Concomitant]
     Route: 048
  8. TAHOR [Concomitant]
     Route: 048
  9. VITAMIN B1 [Concomitant]
     Route: 048
  10. VITAMIN B6 [Concomitant]
     Route: 048
  11. SPASFON [Concomitant]
     Route: 048
  12. SMECTITE [Concomitant]
     Route: 048

REACTIONS (3)
  - Hepatocellular injury [Recovered/Resolved]
  - Transaminases increased [Recovered/Resolved]
  - Gamma-glutamyltransferase increased [Recovered/Resolved]
